FAERS Safety Report 16240404 (Version 1)
Quarter: 2019Q2

REPORT INFORMATION
  Report Type: Spontaneous
  Country: FR (occurrence: FR)
  Receive Date: 20190425
  Receipt Date: 20190425
  Transmission Date: 20190711
  Serious: Yes (Hospitalization, Other)
  Sender: FDA-Public Use
  Company Number: FR-MYLANLABS-2019M1039683

PATIENT
  Age: 60 Year
  Sex: Female

DRUGS (5)
  1. ACIDE FOLIQUE [Concomitant]
     Active Substance: FOLIC ACID
     Dosage: UNK
     Dates: end: 20190301
  2. FONDAPARINUX [Suspect]
     Active Substance: FONDAPARINUX
     Indication: ANTICOAGULANT THERAPY
     Dosage: 2.5 MILLIGRAM, QD
     Route: 058
     Dates: start: 20190223, end: 20190302
  3. PYOSTACINE [Suspect]
     Active Substance: PRISTINAMYCIN
     Indication: ERYSIPELAS
     Route: 048
  4. LYRICA [Concomitant]
     Active Substance: PREGABALIN
  5. CELECTOL [Concomitant]
     Active Substance: CELIPROLOL HYDROCHLORIDE
     Dosage: UNK
     Dates: end: 20190302

REACTIONS (1)
  - Acute generalised exanthematous pustulosis [Recovering/Resolving]

NARRATIVE: CASE EVENT DATE: 20190225
